FAERS Safety Report 16319026 (Version 7)
Quarter: 2019Q4

REPORT INFORMATION
  Report Type: Report from Study
  Country: US (occurrence: US)
  Receive Date: 20190516
  Receipt Date: 20191001
  Transmission Date: 20200122
  Serious: Yes (Death, Other)
  Sender: FDA-Public Use
  Company Number: US-REGENERON PHARMACEUTICALS, INC.-2019-30880

PATIENT

DRUGS (39)
  1. EYLEA [Suspect]
     Active Substance: AFLIBERCEPT
     Dosage: Q6W, 2 MG/0.5 ML SDV, BOTH EYES
     Route: 031
     Dates: start: 20161216, end: 20161216
  2. EYLEA [Suspect]
     Active Substance: AFLIBERCEPT
     Dosage: Q6W, 2 MG/0.5 ML SDV, BOTH EYES
     Route: 031
     Dates: start: 20170922, end: 20170922
  3. DORZOLAMIDE TIMOLOL [Concomitant]
     Active Substance: DORZOLAMIDE
     Indication: PRODUCT USED FOR UNKNOWN INDICATION
     Dosage: 1 DROP IN BOTH EYES, BID
     Dates: start: 20190322
  4. EYLEA [Suspect]
     Active Substance: AFLIBERCEPT
     Dosage: Q6W, 2 MG/0.5 ML SDV, BOTH EYES
     Route: 031
     Dates: start: 20180226, end: 20180226
  5. EYLEA [Suspect]
     Active Substance: AFLIBERCEPT
     Dosage: Q6W, 2 MG/0.5 ML SDV, BOTH EYES
     Route: 031
     Dates: start: 20190322, end: 20190322
  6. GLYBURIDE. [Concomitant]
     Active Substance: GLYBURIDE
     Indication: PRODUCT USED FOR UNKNOWN INDICATION
  7. CHOLECALCIFEROL [Concomitant]
     Active Substance: CHOLECALCIFEROL
     Indication: PRODUCT USED FOR UNKNOWN INDICATION
     Dosage: UNK
     Dates: start: 20190322
  8. EYLEA [Suspect]
     Active Substance: AFLIBERCEPT
     Dosage: Q6W, 2 MG/0.5 ML SDV, BOTH EYES
     Route: 031
     Dates: start: 20170609, end: 20170609
  9. EYLEA [Suspect]
     Active Substance: AFLIBERCEPT
     Dosage: Q6W, 2 MG/0.5 ML SDV, BOTH EYES
     Route: 031
     Dates: start: 20170811, end: 20170811
  10. EYLEA [Suspect]
     Active Substance: AFLIBERCEPT
     Dosage: Q6W, 2 MG/0.5 ML SDV, BOTH EYES
     Route: 031
     Dates: start: 20171023, end: 20171023
  11. EYLEA [Suspect]
     Active Substance: AFLIBERCEPT
     Dosage: Q6W, 2 MG/0.5 ML SDV, BOTH EYES
     Route: 031
     Dates: start: 20180427, end: 20180427
  12. ATORVASTATIN [Concomitant]
     Active Substance: ATORVASTATIN
     Indication: PRODUCT USED FOR UNKNOWN INDICATION
     Dosage: 10 MG, UNK
     Dates: start: 20190322
  13. DORZOLAMIDE [Concomitant]
     Active Substance: DORZOLAMIDE
     Indication: PRODUCT USED FOR UNKNOWN INDICATION
  14. GABAPENTIN. [Concomitant]
     Active Substance: GABAPENTIN
     Indication: PRODUCT USED FOR UNKNOWN INDICATION
  15. METFORMIN [Concomitant]
     Active Substance: METFORMIN HYDROCHLORIDE
     Indication: PRODUCT USED FOR UNKNOWN INDICATION
     Dosage: 1000 MG, UNK
     Dates: start: 20190322
  16. EYLEA [Suspect]
     Active Substance: AFLIBERCEPT
     Dosage: Q6W, 2 MG/0.5 ML SDV, BOTH EYES
     Route: 031
     Dates: start: 20160923, end: 20160923
  17. EYLEA [Suspect]
     Active Substance: AFLIBERCEPT
     Dosage: Q6W, 2 MG/0.5 ML SDV, BOTH EYES
     Route: 031
     Dates: start: 20161104, end: 20161104
  18. EYLEA [Suspect]
     Active Substance: AFLIBERCEPT
     Dosage: Q6W, 2 MG/0.5 ML SDV, BOTH EYES
     Route: 031
     Dates: start: 20170203, end: 20170203
  19. EYLEA [Suspect]
     Active Substance: AFLIBERCEPT
     Dosage: Q6W, 2 MG/0.5 ML SDV, BOTH EYES
     Route: 031
     Dates: start: 20171204, end: 20171204
  20. EYLEA [Suspect]
     Active Substance: AFLIBERCEPT
     Dosage: Q6W, 2 MG/0.5 ML SDV, BOTH EYES
     Route: 031
     Dates: start: 20190208, end: 20190208
  21. BYDUREON [Concomitant]
     Active Substance: EXENATIDE
     Indication: PRODUCT USED FOR UNKNOWN INDICATION
     Dosage: 2 MG, UNK
     Dates: start: 20190322
  22. FLUTICASONE. [Concomitant]
     Active Substance: FLUTICASONE
     Indication: PRODUCT USED FOR UNKNOWN INDICATION
     Dosage: 50 ?G, UNK
     Dates: start: 20190322
  23. VITAMIN D3 [Concomitant]
     Active Substance: CHOLECALCIFEROL
     Indication: PRODUCT USED FOR UNKNOWN INDICATION
  24. VITAMIN C [Concomitant]
     Active Substance: ASCORBIC ACID
     Indication: PRODUCT USED FOR UNKNOWN INDICATION
  25. EYLEA [Suspect]
     Active Substance: AFLIBERCEPT
     Dosage: Q6W, 2 MG/0.5 ML SDV, BOTH EYES
     Route: 031
     Dates: start: 20170707, end: 20170707
  26. EYLEA [Suspect]
     Active Substance: AFLIBERCEPT
     Dosage: Q6W, 2 MG/0.5 ML SDV, BOTH EYES
     Route: 031
     Dates: start: 20181026, end: 20181026
  27. EYLEA [Suspect]
     Active Substance: AFLIBERCEPT
     Dosage: Q6W, 2 MG/0.5 ML SDV, BOTH EYES
     Route: 031
     Dates: start: 20181214, end: 20181214
  28. VITAMIN B12 + FOLIC ACID [Concomitant]
     Indication: PRODUCT USED FOR UNKNOWN INDICATION
  29. EYLEA [Suspect]
     Active Substance: AFLIBERCEPT
     Indication: DIABETIC RETINOPATHY
     Dosage: Q6W, 2 MG/0.5 ML SDV, BOTH EYES
     Route: 031
     Dates: start: 20160805, end: 20160805
  30. EYLEA [Suspect]
     Active Substance: AFLIBERCEPT
     Dosage: Q6W, 2 MG/0.5 ML SDV, BOTH EYES
     Route: 031
     Dates: start: 20190322, end: 20190322
  31. LOSARTAN. [Concomitant]
     Active Substance: LOSARTAN
     Indication: PRODUCT USED FOR UNKNOWN INDICATION
     Dosage: 100 MG, UNK
     Dates: start: 20190322
  32. GLIPIZIDE. [Concomitant]
     Active Substance: GLIPIZIDE
     Indication: PRODUCT USED FOR UNKNOWN INDICATION
     Dosage: 2.5 MG, UNK
     Dates: start: 20190322
  33. LISINOPRIL. [Concomitant]
     Active Substance: LISINOPRIL
     Indication: PRODUCT USED FOR UNKNOWN INDICATION
     Dosage: 10 MG, UNK
     Dates: start: 20190322
  34. LYRICA [Concomitant]
     Active Substance: PREGABALIN
     Indication: PRODUCT USED FOR UNKNOWN INDICATION
     Dosage: 50 MG, UNK
     Dates: start: 20190322
  35. EYLEA [Suspect]
     Active Substance: AFLIBERCEPT
     Indication: DIABETIC RETINAL OEDEMA
     Dosage: Q6W, 2 MG/0.5 ML SDV, BOTH EYES
     Route: 031
     Dates: start: 20160629, end: 20190322
  36. EYLEA [Suspect]
     Active Substance: AFLIBERCEPT
     Dosage: Q6W, 2 MG/0.5 ML SDV, BOTH EYES
     Route: 031
     Dates: start: 20180115, end: 20180115
  37. EYLEA [Suspect]
     Active Substance: AFLIBERCEPT
     Dosage: Q6W, 2 MG/0.5 ML SDV, BOTH EYES
     Route: 031
     Dates: start: 20180622, end: 20180622
  38. EYLEA [Suspect]
     Active Substance: AFLIBERCEPT
     Dosage: Q6W, 2 MG/0.5 ML SDV, BOTH EYES
     Route: 031
     Dates: start: 20180831, end: 20180831
  39. OMEPRAZOLE. [Concomitant]
     Active Substance: OMEPRAZOLE
     Indication: PRODUCT USED FOR UNKNOWN INDICATION
     Dosage: 20 MG, UNK
     Dates: start: 20190322

REACTIONS (11)
  - Anterior chamber pigmentation [Unknown]
  - Neovascular age-related macular degeneration [Unknown]
  - Barrett^s oesophagus [Unknown]
  - Knee operation [Unknown]
  - Eye pain [Recovered/Resolved]
  - Visual acuity reduced transiently [Recovered/Resolved]
  - Death [Fatal]
  - Normal tension glaucoma [Not Recovered/Not Resolved]
  - Eye haemorrhage [Unknown]
  - Foveal reflex abnormal [Unknown]
  - Posterior capsule opacification [Recovered/Resolved]

NARRATIVE: CASE EVENT DATE: 201608
